FAERS Safety Report 9186897 (Version 1)
Quarter: 2013Q1

REPORT INFORMATION
  Report Type: Spontaneous
  Country: PE (occurrence: PE)
  Receive Date: 20130325
  Receipt Date: 20130325
  Transmission Date: 20140127
  Serious: Yes (Death)
  Sender: FDA-Public Use
  Company Number: PE-GLAXOSMITHKLINE-A0999530A

PATIENT
  Sex: Female

DRUGS (1)
  1. SERETIDE [Suspect]
     Indication: PULMONARY FIBROSIS
     Dosage: 2PUFF TWICE PER DAY
     Route: 055
     Dates: start: 20091125

REACTIONS (2)
  - Pulmonary fibrosis [Fatal]
  - Off label use [Unknown]
